FAERS Safety Report 10883772 (Version 3)
Quarter: 2015Q3

REPORT INFORMATION
  Report Type: Spontaneous
  Country: JP (occurrence: JP)
  Receive Date: 20150304
  Receipt Date: 20150722
  Transmission Date: 20151125
  Serious: Yes (Hospitalization, Other)
  Sender: FDA-Public Use
  Company Number: JP-UCBSA-2015006049

PATIENT
  Age: 78 Year
  Sex: Female

DRUGS (14)
  1. NEUPRO [Suspect]
     Active Substance: ROTIGOTINE
     Indication: PARKINSON^S DISEASE
     Dosage: 4 MG/24 H, ONCE DAILY (QD)
     Route: 062
     Dates: start: 20130327, end: 20130424
  2. NEUPRO [Suspect]
     Active Substance: ROTIGOTINE
     Dosage: 8 MG/24 H, ONCE DAILY (QD)
     Route: 062
     Dates: start: 20130425, end: 20130612
  3. BENSERAZIDE HYDROCHLORIDE, LEVODOPA [Concomitant]
     Indication: PRODUCT USED FOR UNKNOWN INDICATION
     Dosage: DAILY DOSE: 600 MG
     Dates: start: 200609
  4. NEUPRO [Suspect]
     Active Substance: ROTIGOTINE
     Dosage: 16 MG/24 H, ONCE DAILY (QD)
     Route: 062
     Dates: start: 201309, end: 20141022
  5. NEUPRO [Suspect]
     Active Substance: ROTIGOTINE
     Dosage: 8 MG/24 H, ONCE DAILY (QD)
     Route: 062
     Dates: start: 20150108, end: 20150121
  6. NEUPRO [Suspect]
     Active Substance: ROTIGOTINE
     Dosage: 4 MG, ONCE DAILY (QD)
     Route: 062
     Dates: start: 20150122, end: 20150128
  7. REQUIP [Suspect]
     Active Substance: ROPINIROLE HYDROCHLORIDE
     Indication: PRODUCT USED FOR UNKNOWN INDICATION
     Dosage: 4 DF, (2 MG 4 TABLETS)
     Route: 048
     Dates: start: 20141022, end: 20141210
  8. NEUPRO [Suspect]
     Active Substance: ROTIGOTINE
     Dosage: 12 MG/24 H, ONCE DAILY (QD)
     Route: 062
     Dates: start: 20130613, end: 20130731
  9. NEUPRO [Suspect]
     Active Substance: ROTIGOTINE
     Dosage: 12 MG/24 H, ONCE DAILY (QD)
     Route: 062
     Dates: start: 20141217, end: 20150107
  10. REQUIP [Suspect]
     Active Substance: ROPINIROLE HYDROCHLORIDE
     Dosage: DAILY DOSE: 2 MG
     Route: 048
     Dates: start: 20150121
  11. DOPS [Concomitant]
     Active Substance: DROXIDOPA
     Indication: PRODUCT USED FOR UNKNOWN INDICATION
     Dosage: 100 MG
     Dates: start: 200907
  12. NEUPRO [Suspect]
     Active Substance: ROTIGOTINE
     Dosage: 14 MG/24 H, ONCE DAILY (QD)
     Route: 062
     Dates: start: 20130801, end: 20130904
  13. PRAMIPEXOLE HYDROCHLORIDE MONOHYDRATE [Concomitant]
     Indication: PRODUCT USED FOR UNKNOWN INDICATION
     Dosage: 0.5 MG THREE TABLETS
  14. NEUPRO [Suspect]
     Active Substance: ROTIGOTINE
     Dosage: 8 MG/24 H, ONCE DAILY (QD)
     Route: 062
     Dates: start: 20141210, end: 20141216

REACTIONS (4)
  - Drug dose titration not performed [Unknown]
  - Drug titration error [Unknown]
  - Generalised oedema [Recovering/Resolving]
  - Oedema peripheral [Recovering/Resolving]

NARRATIVE: CASE EVENT DATE: 20130327
